FAERS Safety Report 8483769-9 (Version None)
Quarter: 2012Q3

REPORT INFORMATION
  Report Type: 
  Country: None (occurrence: None)
  Receive Date: 20120703
  Receipt Date: 20120622
  Transmission Date: 20120928
  Serious: No
  Sender: FDA-Public Use
  Company Number: US-BIOGENIDEC-2012BI014542

PATIENT
  Sex: Male

DRUGS (3)
  1. LISINOPRIL [Concomitant]
  2. ZOCOR [Concomitant]
  3. TYSABRI [Suspect]
     Indication: MULTIPLE SCLEROSIS
     Route: 042
     Dates: start: 20071012

REACTIONS (4)
  - AMNESIA [None]
  - HEPATIC ENZYME INCREASED [None]
  - BLOOD CHOLESTEROL [None]
  - DERMATITIS [None]
